FAERS Safety Report 18776493 (Version 3)
Quarter: 2021Q1

REPORT INFORMATION
  Report Type: Spontaneous
  Country: CH (occurrence: CH)
  Receive Date: 20210122
  Receipt Date: 20210212
  Transmission Date: 20210419
  Serious: Yes (Hospitalization, Other)
  Sender: FDA-Public Use
  Company Number: CH-TAKEDA-2021TUS003750

PATIENT
  Sex: Male

DRUGS (4)
  1. CUVITRU [Suspect]
     Active Substance: HUMAN IMMUNOGLOBULIN G
     Indication: PRODUCT USED FOR UNKNOWN INDICATION
     Dosage: UNK
     Route: 065
  2. CUVITRU [Suspect]
     Active Substance: HUMAN IMMUNOGLOBULIN G
     Dosage: 2 GRAM/10ML, 1/WEEK
     Route: 058
     Dates: start: 20200918, end: 20200918
  3. CUVITRU [Suspect]
     Active Substance: HUMAN IMMUNOGLOBULIN G
     Dosage: 2 GRAM/10ML, 1/WEEK
     Route: 058
     Dates: start: 20201212, end: 20201212
  4. CUVITRU [Suspect]
     Active Substance: HUMAN IMMUNOGLOBULIN G
     Dosage: 2 GRAM/10ML, 1/WEEK
     Route: 058
     Dates: start: 20201114, end: 20201114

REACTIONS (5)
  - Cholangiocarcinoma [Unknown]
  - Peripheral swelling [Unknown]
  - Abdominal pain [Unknown]
  - Vomiting [Unknown]
  - Product complaint [Unknown]

NARRATIVE: CASE EVENT DATE: 202009
